FAERS Safety Report 8632476 (Version 4)
Quarter: 2013Q3

REPORT INFORMATION
  Report Type: Spontaneous
  Country: US (occurrence: US)
  Receive Date: 20120625
  Receipt Date: 20130801
  Transmission Date: 20140515
  Serious: Yes (Hospitalization, Other)
  Sender: FDA-Public Use
  Company Number: US-CELGENEUS-163-21880-12062580

PATIENT
  Sex: Female

DRUGS (5)
  1. REVLIMID [Suspect]
     Indication: PLASMA CELL MYELOMA
     Dosage: 25 MILLIGRAM
     Route: 048
     Dates: start: 201201
  2. REVLIMID [Suspect]
     Dosage: 10 MILLIGRAM
     Route: 048
     Dates: start: 201202
  3. REVLIMID [Suspect]
     Dosage: 10 MILLIGRAM
     Route: 048
     Dates: start: 20120330
  4. REVLIMID [Suspect]
     Dosage: 10 MG - 25 MG
     Route: 048
     Dates: start: 201303, end: 2013
  5. REVLIMID [Suspect]
     Dosage: 10 MILLIGRAM
     Route: 048
     Dates: start: 201306, end: 2013

REACTIONS (6)
  - Electrolyte imbalance [Unknown]
  - Dehydration [Unknown]
  - Cystitis [Unknown]
  - Hypersomnia [Unknown]
  - Lethargy [Unknown]
  - Fatigue [Unknown]
